FAERS Safety Report 5438896-7 (Version None)
Quarter: 2007Q3

REPORT INFORMATION
  Report Type: 
  Country: None (occurrence: None)
  Receive Date: 20070831
  Receipt Date: 20070823
  Transmission Date: 20080115
  Serious: No
  Sender: FDA-Public Use
  Company Number: A0674265A

PATIENT

DRUGS (1)
  1. ALLI [Suspect]
     Dates: start: 20070723

REACTIONS (6)
  - ABNORMAL FAECES [None]
  - FREQUENT BOWEL MOVEMENTS [None]
  - INITIAL INSOMNIA [None]
  - MIDDLE INSOMNIA [None]
  - STEATORRHOEA [None]
  - THERAPEUTIC RESPONSE UNEXPECTED [None]
